FAERS Safety Report 5409434-X (Version None)
Quarter: 2007Q3

REPORT INFORMATION
  Report Type: 
  Country: None (occurrence: None)
  Receive Date: 20070807
  Receipt Date: 20070807
  Transmission Date: 20080115
  Serious: Yes (Life-Threatening, Hospitalization)
  Sender: FDA-Public Use
  Company Number: None

PATIENT
  Age: 84 Year
  Sex: Female
  Weight: 58.2 kg

DRUGS (8)
  1. SOTALOL HCL [Suspect]
     Indication: ATRIAL FIBRILLATION
     Dosage: 160MG BID PO
     Route: 048
  2. ALBUTEROL [Concomitant]
  3. IPRATROPIUM BROMIDE [Concomitant]
  4. ENOXAPARIN SODIUM [Concomitant]
  5. PANTOPRAZOLE SODIUM [Concomitant]
  6. VALPROIC ACID [Concomitant]
  7. METOPROLOL SUCCINATE [Concomitant]
  8. INSULIN ASPART SLIDING SCALE [Concomitant]

REACTIONS (10)
  - AGITATION [None]
  - ATRIAL FIBRILLATION [None]
  - DEVICE DISLOCATION [None]
  - ELECTROCARDIOGRAM QT PROLONGED [None]
  - HAEMOPTYSIS [None]
  - HYPOXIA [None]
  - LUNG INFILTRATION [None]
  - PROCEDURAL COMPLICATION [None]
  - VENTRICULAR EXTRASYSTOLES [None]
  - VENTRICULAR TACHYCARDIA [None]
